FAERS Safety Report 5465171-7 (Version None)
Quarter: 2007Q3

REPORT INFORMATION
  Report Type: 
  Country: None (occurrence: None)
  Receive Date: 20070820
  Receipt Date: 20070523
  Transmission Date: 20080115
  Serious: No
  Sender: FDA-Public Use
  Company Number: WAES 0705USA04916

PATIENT
  Age: 69 Year
  Sex: Female

DRUGS (10)
  1. JANUVIA [Suspect]
     Indication: TYPE 2 DIABETES MELLITUS
     Dosage: 100 MG/UNK/PO
     Route: 048
     Dates: start: 20070111, end: 20070113
  2. AMARYL [Concomitant]
  3. EVISTA [Concomitant]
  4. GLUCOPHAGE [Concomitant]
  5. GLYSET [Concomitant]
  6. ZOCOR [Concomitant]
  7. ASPIRIN [Concomitant]
  8. ATENOLOL [Concomitant]
  9. DIGOXIN [Concomitant]
  10. HYDROCHLOROTHIAZIDE [Concomitant]

REACTIONS (3)
  - ASTHENIA [None]
  - DIARRHOEA [None]
  - NAUSEA [None]
